FAERS Safety Report 10424891 (Version 1)
Quarter: 2014Q3

REPORT INFORMATION
  Report Type: Spontaneous
  Country: US (occurrence: None)
  Receive Date: 20140725
  Receipt Date: 20140725
  Transmission Date: 20150326
  Serious: No
  Sender: FDA-Public Use
  Company Number: AP356-00707-SPO-US

PATIENT
  Age: 62 Year
  Sex: Female
  Weight: 82 kg

DRUGS (7)
  1. SIMVASTATIN. [Concomitant]
     Active Substance: SIMVASTATIN
  2. JENTADUETO (LINAGLIPTIN/METFORMIN) (ORAL ANTIDIABETICS) [Concomitant]
  3. WELCHOL (COLESEVELAM HYDROCHLORIDE) [Concomitant]
  4. SYNTHROID [Concomitant]
     Active Substance: LEVOTHYROXINE SODIUM
  5. BELVIQ [Suspect]
     Active Substance: LORCASERIN HYDROCHLORIDE
     Indication: WEIGHT DECREASED
     Route: 048
     Dates: start: 20140428
  6. VICTOZA [Concomitant]
     Active Substance: LIRAGLUTIDE
  7. CYMBALTA [Concomitant]
     Active Substance: DULOXETINE HYDROCHLORIDE

REACTIONS (4)
  - Insomnia [None]
  - Headache [None]
  - Nasal congestion [None]
  - Back pain [None]

NARRATIVE: CASE EVENT DATE: 20140428
